FAERS Safety Report 17834711 (Version 1)
Quarter: 2020Q2

REPORT INFORMATION
  Report Type: Spontaneous
  Country: US (occurrence: US)
  Receive Date: 20200528
  Receipt Date: 20200528
  Transmission Date: 20200714
  Serious: No
  Sender: FDA-Public Use
  Company Number: US-GLENMARK PHARMACEUTICALS-2020GMK046611

PATIENT

DRUGS (1)
  1. FULVESTRANT INJECTION, 250 MG/5 ML (50 MG/ML) [Suspect]
     Active Substance: FULVESTRANT
     Indication: BREAST CANCER METASTATIC
     Dosage: 500 MILLIGRAM (TWO 5 ML INJECTIONS, ONE IN EACH BUTTOCK, ON DAYS 1, 15, 29, AND ONCE MONTHLY THEREAF
     Route: 030
     Dates: start: 20191021

REACTIONS (4)
  - Device malfunction [Unknown]
  - Syringe issue [Unknown]
  - No adverse event [Unknown]
  - Accidental exposure to product [Unknown]
